FAERS Safety Report 18891997 (Version 1)
Quarter: 2021Q1

REPORT INFORMATION
  Report Type: Other
  Country: TR (occurrence: TR)
  Receive Date: 20210215
  Receipt Date: 20210215
  Transmission Date: 20210420
  Serious: Yes (Hospitalization)
  Sender: FDA-Public Use
  Company Number: TR-APPCO PHARMA LLC-2106749

PATIENT
  Age: 80 Year
  Sex: Male

DRUGS (7)
  1. VITAMIN C [Concomitant]
     Active Substance: ASCORBIC ACID
     Route: 065
  2. VITAMIN B COMPLEX [Concomitant]
     Active Substance: CYANOCOBALAMIN\DEXPANTHENOL\NIACINAMIDE\PYRIDOXINE HYDROCHLORIDE\RIBOFLAVIN 5^-PHOSPHATE SODIUM\THIAMINE HYDROCHLORIDE\VITAMIN B COMPLEX
     Route: 065
  3. DEXTROSE SOLUTION (5%) [Concomitant]
     Route: 065
  4. RANITIDINE. [Concomitant]
     Active Substance: RANITIDINE
     Route: 065
  5. ASPIRIN. [Concomitant]
     Active Substance: ASPIRIN
     Route: 065
  6. HYDROXYCHLOROQUINE SULFATE. [Suspect]
     Active Substance: HYDROXYCHLOROQUINE SULFATE
     Indication: COVID-19
     Route: 065
  7. NACL (0.45%) [Concomitant]
     Route: 065

REACTIONS (2)
  - Off label use [Unknown]
  - Blood creatine phosphokinase increased [Recovering/Resolving]
